FAERS Safety Report 18694194 (Version 1)
Quarter: 2021Q1

REPORT INFORMATION
  Report Type: Spontaneous
  Country: US (occurrence: US)
  Receive Date: 20210102
  Receipt Date: 20210102
  Transmission Date: 20210419
  Serious: Yes (Other)
  Sender: FDA-Public Use
  Company Number: None

PATIENT
  Age: 77 Year
  Sex: Female
  Weight: 63 kg

DRUGS (1)
  1. BAMLANIVIMAB. [Suspect]
     Active Substance: BAMLANIVIMAB
     Indication: COVID-19
     Dates: start: 20201229, end: 20201229

REACTIONS (4)
  - Hyperhidrosis [None]
  - Headache [None]
  - Feeling hot [None]
  - Myalgia [None]

NARRATIVE: CASE EVENT DATE: 20201229
